FAERS Safety Report 5279187-7 (Version None)
Quarter: 2007Q1

REPORT INFORMATION
  Report Type: 
  Country: None (occurrence: None)
  Receive Date: 20061213
  Receipt Date: 20060428
  Transmission Date: 20070707
  Serious: No
  Sender: FDA-Public Use
  Company Number: 2006UW07654

PATIENT
  Age: 61 Year
  Sex: Female

DRUGS (3)
  1. SEROQUEL [Suspect]
     Indication: ANTIDEPRESSANT THERAPY
     Dates: start: 20060201, end: 20060101
  2. INTERFERON BETA-1B [Suspect]
     Indication: MULTIPLE SCLEROSIS
     Dosage: 250 UG SQ
     Dates: start: 20000203
  3. KLONOPIN [Concomitant]

REACTIONS (4)
  - AMNESIA [None]
  - HALLUCINATION [None]
  - HYPERVENTILATION [None]
  - WEIGHT DECREASED [None]
